FAERS Safety Report 8325177-7 (Version None)
Quarter: 2012Q2

REPORT INFORMATION
  Report Type: 
  Country: None (occurrence: None)
  Receive Date: 20120427
  Receipt Date: 20120413
  Transmission Date: 20120825
  Serious: Yes (Hospitalization)
  Sender: FDA-Public Use
  Company Number: JP-2012-14969

PATIENT
  Age: 59 Year
  Sex: Male

DRUGS (5)
  1. GASLON-N (IRSOGLADINE MALEATE) [Concomitant]
  2. LIPINON (ATORVASTATIN) [Concomitant]
  3. JANUMET [Concomitant]
  4. GLUFAST (MITIGLINIDE CALCIUM) [Concomitant]
  5. CILOSTAZOL [Suspect]
     Indication: ARTERIAL STENOSIS
     Dosage: ORAL
     Route: 048
     Dates: start: 20111117

REACTIONS (2)
  - HEMIPARESIS [None]
  - CLUMSINESS [None]
